FAERS Safety Report 9462162 (Version 3)
Quarter: 2013Q3

REPORT INFORMATION
  Report Type: Spontaneous
  Country: US (occurrence: US)
  Receive Date: 20130816
  Receipt Date: 20130912
  Transmission Date: 20140515
  Serious: Yes (Other)
  Sender: FDA-Public Use
  Company Number: PHEH2013US017095

PATIENT
  Sex: Female

DRUGS (7)
  1. DIOVAN [Suspect]
     Indication: HYPERTENSION
     Dosage: 30 MG, UNK
     Route: 048
  2. DIOVAN [Suspect]
     Dosage: 40 MG, UNK
     Route: 048
  3. DIOVAN [Suspect]
     Dosage: 320 MG, UNK
     Route: 048
  4. METOPROLOL [Concomitant]
     Indication: HYPERTENSION
     Dosage: 25 MG, QD
     Route: 048
  5. NITROGLYCERIN [Concomitant]
     Indication: CARDIAC DISORDER
  6. ADVAIR [Concomitant]
     Indication: ASTHMA
  7. PAROXETINE [Concomitant]
     Indication: DEPRESSION
     Dosage: 4 MG, UNK

REACTIONS (4)
  - Cerebrovascular accident [Unknown]
  - Blood pressure abnormal [Recovered/Resolved]
  - Dizziness [Unknown]
  - Incorrect dose administered [Unknown]
